FAERS Safety Report 13544819 (Version 1)
Quarter: 2017Q2

REPORT INFORMATION
  Report Type: Spontaneous
  Country: CH (occurrence: CH)
  Receive Date: 20170515
  Receipt Date: 20170515
  Transmission Date: 20170830
  Serious: Yes (Hospitalization, Other)
  Sender: FDA-Public Use
  Company Number: CH-GLAXOSMITHKLINE-CH2017068171

PATIENT
  Age: 27 Year
  Sex: Male
  Weight: 75 kg

DRUGS (8)
  1. VALIUM [Suspect]
     Active Substance: DIAZEPAM
     Indication: STATUS EPILEPTICUS
     Dosage: UNK
     Route: 041
     Dates: start: 20170409
  2. DORMICUM (MIDAZOLAM MALEATE) [Suspect]
     Active Substance: MIDAZOLAM MALEATE
     Indication: STATUS EPILEPTICUS
     Dosage: UNK
     Route: 045
     Dates: start: 20170409, end: 20170410
  3. ZANTAC [Suspect]
     Active Substance: RANITIDINE HYDROCHLORIDE
     Indication: HYPERSENSITIVITY
     Dosage: UNK
     Route: 065
     Dates: start: 20170409
  4. REYATAZ [Suspect]
     Active Substance: ATAZANAVIR SULFATE
     Indication: HIV INFECTION
     Dosage: 300 MG, QD
     Route: 065
     Dates: start: 201008
  5. NORVIR [Suspect]
     Active Substance: RITONAVIR
     Indication: HIV INFECTION
     Dosage: 100 MG, QD
     Route: 048
     Dates: start: 201008
  6. SOLU-MEDROL [Suspect]
     Active Substance: METHYLPREDNISOLONE SODIUM SUCCINATE
     Indication: HYPERSENSITIVITY
     Dosage: 125 MG, UNK
     Route: 041
     Dates: start: 20170409
  7. TAVEGYL [Suspect]
     Active Substance: CLEMASTINE FUMARATE
     Indication: HYPERSENSITIVITY
     Dosage: 2 MG, UNK
     Route: 041
     Dates: start: 20170409
  8. TRUVADA [Suspect]
     Active Substance: EMTRICITABINE\TENOFOVIR DISOPROXIL FUMARATE
     Indication: HIV INFECTION
     Dosage: UNK MG, UNK
     Route: 048
     Dates: start: 201008

REACTIONS (2)
  - Distributive shock [Recovered/Resolved]
  - Hypersensitivity [Recovered/Resolved]

NARRATIVE: CASE EVENT DATE: 20170409
